FAERS Safety Report 21087210 (Version 1)
Quarter: 2022Q3

REPORT INFORMATION
  Report Type: Spontaneous
  Country: US (occurrence: None)
  Receive Date: 20220714
  Receipt Date: 20220714
  Transmission Date: 20221026
  Serious: Yes (Hospitalization)
  Sender: FDA-Public Use
  Company Number: None

PATIENT
  Age: 72 Year
  Sex: Male
  Weight: 91 kg

DRUGS (1)
  1. ASPIRIN [Suspect]
     Active Substance: ASPIRIN
     Indication: Peripheral vascular disorder
     Dosage: 81 MG EVERY DAY PO?
     Route: 048
     Dates: start: 20080124, end: 20220502

REACTIONS (3)
  - Haemorrhage [None]
  - Anaemia [None]
  - Faeces discoloured [None]

NARRATIVE: CASE EVENT DATE: 20220426
